FAERS Safety Report 24654461 (Version 2)
Quarter: 2024Q4

REPORT INFORMATION
  Report Type: Spontaneous
  Country: US (occurrence: US)
  Receive Date: 20241122
  Receipt Date: 20241204
  Transmission Date: 20250115
  Serious: Yes (Life-Threatening, Other)
  Sender: GILEAD
  Company Number: US-GILEAD-2024-0694832

PATIENT
  Age: 40 Year
  Sex: Male
  Weight: 147.39 kg

DRUGS (17)
  1. YESCARTA [Suspect]
     Active Substance: AXICABTAGENE CILOLEUCEL
     Indication: Diffuse large B-cell lymphoma
     Dosage: UNK
     Route: 042
     Dates: start: 20240308, end: 20240308
  2. HYPER CVAD [CYCLOPHOSPHAMIDE;CYTARABINE;DEXAMETHASONE;DOXORUBICIN;FOLI [Concomitant]
  3. ALLOPURINOL [Concomitant]
     Active Substance: ALLOPURINOL
  4. BACLOFEN [Concomitant]
     Active Substance: BACLOFEN
  5. BUPROPION [Concomitant]
     Active Substance: BUPROPION
  6. DAPSONE [Concomitant]
     Active Substance: DAPSONE
  7. DULOXETINE [Concomitant]
     Active Substance: DULOXETINE
  8. FLUCONAZOLE [Concomitant]
     Active Substance: FLUCONAZOLE
  9. LOPERAMIDE [Concomitant]
     Active Substance: LOPERAMIDE
  10. MORPHINE [Concomitant]
     Active Substance: MORPHINE
  11. NALOXONE [Concomitant]
     Active Substance: NALOXONE
  12. PREGABALIN [Concomitant]
     Active Substance: PREGABALIN
  13. PROCHLORPERAZINE [Concomitant]
     Active Substance: PROCHLORPERAZINE
  14. DOCUSATE SODIUM\SENNOSIDES A AND B [Concomitant]
     Active Substance: DOCUSATE SODIUM\SENNOSIDES A AND B
  15. VALACYCLOVIR [Concomitant]
     Active Substance: VALACYCLOVIR HYDROCHLORIDE
  16. ONDANSETRON [Concomitant]
     Active Substance: ONDANSETRON
  17. OXYCODONE [Concomitant]
     Active Substance: OXYCODONE

REACTIONS (1)
  - Acute myeloid leukaemia [Not Recovered/Not Resolved]

NARRATIVE: CASE EVENT DATE: 20241114
